FAERS Safety Report 7217157-X (Version None)
Quarter: 2011Q1

REPORT INFORMATION
  Report Type: 
  Country: None (occurrence: None)
  Receive Date: 20110110
  Receipt Date: 20101231
  Transmission Date: 20110831
  Serious: Yes (Hospitalization, Other)
  Sender: FDA-Public Use
  Company Number: US-PFIZER INC-2008086591

PATIENT
  Sex: Female

DRUGS (21)
  1. DECADRON [Concomitant]
     Dosage: ON WEDNESDAY
  2. BLOOD AND RELATED PRODUCTS [Concomitant]
     Indication: HAEMOGLOBIN DECREASED
     Route: 042
  3. REVLIMID [Suspect]
     Indication: MULTIPLE MYELOMA
     Dosage: QD X 21
     Route: 048
     Dates: start: 20080610
  4. ZOMETA [Concomitant]
     Indication: MULTIPLE MYELOMA
     Route: 042
     Dates: start: 20080716
  5. PRILOSEC [Concomitant]
  6. REVLIMID [Suspect]
     Dosage: UNK
     Route: 048
     Dates: start: 20080826
  7. LEXAPRO [Concomitant]
     Indication: DEPRESSION
     Dosage: HS
  8. HYDROCHLOROTHIAZIDE [Concomitant]
     Indication: OEDEMA
     Dosage: AS NEEDED
     Route: 048
  9. EFFEXOR [Suspect]
  10. MEGACE [Concomitant]
     Indication: APPETITE DISORDER
     Dates: start: 20080801
  11. PREDNISONE [Concomitant]
     Indication: MULTIPLE MYELOMA
     Dates: start: 20080820
  12. ALDACTONE [Concomitant]
     Indication: HYPERTENSION
     Dosage: DAILY EVERY MORNING
     Route: 048
  13. ACETYLSALICYLIC ACID SRT [Concomitant]
     Dates: start: 20080610
  14. K-DUR [Concomitant]
     Indication: HYPOKALAEMIA
  15. PREVACID [Concomitant]
     Indication: DYSPEPSIA
  16. MIRALAX [Concomitant]
  17. MAGNESIUM OXIDE [Concomitant]
     Indication: HYPOMAGNESAEMIA
  18. NYSTATIN [Concomitant]
     Route: 048
  19. ZITHROMAX [Suspect]
  20. EPOGEN [Concomitant]
     Indication: ANAEMIA
     Dates: start: 20080701
  21. HYDRODIURIL [Concomitant]
     Indication: OEDEMA
     Dosage: IN THE MORNING AS NEEDED

REACTIONS (13)
  - DIARRHOEA [None]
  - WEIGHT DECREASED [None]
  - CONSTIPATION [None]
  - PNEUMONIA [None]
  - DEHYDRATION [None]
  - VOMITING [None]
  - PANCYTOPENIA [None]
  - TACHYCARDIA [None]
  - NAUSEA [None]
  - DECREASED APPETITE [None]
  - CANDIDIASIS [None]
  - LIVER FUNCTION TEST ABNORMAL [None]
  - OEDEMA [None]
